FAERS Safety Report 7605207-8 (Version None)
Quarter: 2011Q3

REPORT INFORMATION
  Report Type: 
  Country: None (occurrence: None)
  Receive Date: 20110705
  Receipt Date: 20110621
  Transmission Date: 20111222
  Serious: Yes (Life-Threatening, Hospitalization, Other)
  Sender: FDA-Public Use
  Company Number: AUR-APL-2010-01444

PATIENT
  Age: 52 Year
  Sex: Male

DRUGS (6)
  1. FLOXACILLIN (FLUCLOXACILLIN) [Concomitant]
  2. SIMVASTATIN [Suspect]
     Indication: PRODUCT USED FOR UNKNOWN INDICATION
     Dosage: 40 MG (40 MG, 1 IN 1 D), ORAL
     Route: 048
  3. AMLODIPINE [Concomitant]
  4. HUMALOG MIX 25 (HUMALOG MIX /01500801/) [Concomitant]
  5. FUSIDIC ACID [Suspect]
     Indication: LOCALISED INFECTION
     Dosage: 1500 MG (500 MG, 3 IN 1 D),
  6. FUSIDIC ACID [Suspect]
     Indication: OSTEOMYELITIS
     Dosage: 1500 MG (500 MG, 3 IN 1 D),

REACTIONS (6)
  - RHABDOMYOLYSIS [None]
  - RESPIRATORY DISORDER [None]
  - QUADRIPARESIS [None]
  - DRUG INTERACTION [None]
  - RENAL FAILURE [None]
  - HAEMODIALYSIS [None]
